FAERS Safety Report 9295398 (Version 2)
Quarter: 2013Q2

REPORT INFORMATION
  Report Type: Spontaneous
  Country: US (occurrence: None)
  Receive Date: 20121227
  Receipt Date: 20130507
  Transmission Date: 20140414
  Serious: No
  Sender: FDA-Public Use
  Company Number: PHEH2012US022476

PATIENT
  Age: 73 Year
  Sex: Female

DRUGS (1)
  1. AFINITOR (RAD) [Suspect]
     Indication: CARDIAC NEOPLASM MALIGNANT
     Route: 048
     Dates: start: 20121018

REACTIONS (3)
  - Diarrhoea [None]
  - Accident [None]
  - Rash [None]
